FAERS Safety Report 23834046 (Version 1)
Quarter: 2024Q2

REPORT INFORMATION
  Report Type: Report from Study
  Country: BR (occurrence: BR)
  Receive Date: 20240509
  Receipt Date: 20240509
  Transmission Date: 20240716
  Serious: Yes (Hospitalization, Other)
  Sender: FDA-Public Use
  Company Number: BR-CELLTRION INC.-2024BR010319

PATIENT

DRUGS (2)
  1. INFLIXIMAB [Suspect]
     Active Substance: INFLIXIMAB
     Indication: Crohn^s disease
     Dosage: 4 TO 5 AMPOULES OF REMSIMA EVERY 8 WEEKS
     Route: 042
     Dates: start: 20221017
  2. INFLIXIMAB [Suspect]
     Active Substance: INFLIXIMAB
     Dosage: INCREASED 8 TO 9 AMPOULES EVERY 8 WEEKS AFTER HOSPITALIZATION
     Route: 042

REACTIONS (2)
  - Crohn^s disease [Recovering/Resolving]
  - Drug ineffective [Recovering/Resolving]
